FAERS Safety Report 25425500 (Version 1)
Quarter: 2025Q2

REPORT INFORMATION
  Report Type: Spontaneous
  Country: GB (occurrence: GB)
  Receive Date: 20250611
  Receipt Date: 20250611
  Transmission Date: 20250717
  Serious: Yes (Other)
  Sender: BOEHRINGER INGELHEIM
  Company Number: GB-MHRA-TPP977314C579002YC1749575158375

PATIENT
  Age: 60 Year
  Sex: Female
  Weight: 96 kg

DRUGS (6)
  1. EMPAGLIFLOZIN [Suspect]
     Active Substance: EMPAGLIFLOZIN
     Indication: Ill-defined disorder
  2. SITAGLIPTIN [Concomitant]
     Active Substance: SITAGLIPTIN
     Indication: Ill-defined disorder
     Dosage: FORM OF ADMIN:TPP YC - PLEASE RECLASSIFY
     Dates: start: 20240712
  3. ATORVASTATIN [Concomitant]
     Active Substance: ATORVASTATIN
     Indication: Ill-defined disorder
  4. BENDROFLUMETHIAZIDE [Concomitant]
     Active Substance: BENDROFLUMETHIAZIDE
     Indication: Ill-defined disorder
     Dosage: TAKE ONE EACH MORNING?FORM OF ADMIN:TPP YC - PLEASE RECLASSIFY
     Dates: start: 20210604
  5. LOSARTAN [Concomitant]
     Active Substance: LOSARTAN
     Indication: Ill-defined disorder
  6. METFORMIN [Concomitant]
     Active Substance: METFORMIN HYDROCHLORIDE
     Indication: Ill-defined disorder
     Dosage: FORM OF ADMIN:TPP YC - PLEASE RECLASSIFY
     Dates: start: 20250415

REACTIONS (4)
  - Pruritus [Recovered/Resolved]
  - Taste disorder [Recovered/Resolved]
  - Palpitations [Recovered/Resolved]
  - Nail disorder [Recovering/Resolving]

NARRATIVE: CASE EVENT DATE: 20250610
